FAERS Safety Report 13500644 (Version 4)
Quarter: 2017Q2

REPORT INFORMATION
  Report Type: Report from Study
  Country: CA (occurrence: CA)
  Receive Date: 20170501
  Receipt Date: 20170525
  Transmission Date: 20170830
  Serious: Yes (Other)
  Sender: FDA-Public Use
  Company Number: CA-HLSUS-2017-CA-000269

PATIENT
  Age: 57 Year
  Sex: Male

DRUGS (1)
  1. CLOZARIL [Suspect]
     Active Substance: CLOZAPINE
     Dosage: 300 MG PO QHS AND 50 MG PO QHS
     Route: 048
     Dates: start: 19950110

REACTIONS (3)
  - Leukopenia [Unknown]
  - Oesophageal adenocarcinoma [Unknown]
  - Neutropenia [Unknown]

NARRATIVE: CASE EVENT DATE: 20170328
